FAERS Safety Report 22133568 (Version 1)
Quarter: 2023Q1

REPORT INFORMATION
  Report Type: Other
  Country: CA (occurrence: None)
  Receive Date: 20230324
  Receipt Date: 20230324
  Transmission Date: 20230418
  Serious: No
  Sender: FDA-Public Use
  Company Number: CA-ROCHE-2976807

PATIENT
  Age: 35 Year
  Sex: Female

DRUGS (1)
  1. OCREVUS [Suspect]
     Active Substance: OCRELIZUMAB
     Indication: Relapsing-remitting multiple sclerosis
     Dosage: 300 MG AT DAY 0 AND 14, THEN 600 MG EVERY 6 MONTH
     Route: 042
     Dates: start: 20200925

REACTIONS (4)
  - Bronchitis [Recovered/Resolved]
  - Nausea [Unknown]
  - Maternal exposure during pregnancy [Unknown]
  - COVID-19 [Unknown]

NARRATIVE: CASE EVENT DATE: 20220316
